FAERS Safety Report 9727068 (Version 1)
Quarter: 2013Q4

REPORT INFORMATION
  Report Type: Spontaneous
  Country: AU (occurrence: US)
  Receive Date: 20131203
  Receipt Date: 20131203
  Transmission Date: 20140711
  Serious: Yes (Other)
  Sender: FDA-Public Use
  Company Number: AU-MALLINCKRODT-T201304980

PATIENT
  Age: 52 Year
  Sex: Female

DRUGS (8)
  1. ROXICODONE [Suspect]
     Indication: PRODUCT USED FOR UNKNOWN INDICATION
     Route: 065
  2. TAPENTADOL [Suspect]
     Indication: PRODUCT USED FOR UNKNOWN INDICATION
     Route: 048
  3. ALPRAZOLAM [Suspect]
     Indication: PRODUCT USED FOR UNKNOWN INDICATION
     Route: 065
  4. ETHANOL [Suspect]
     Indication: PRODUCT USED FOR UNKNOWN INDICATION
     Route: 065
  5. GABAPENTIN [Concomitant]
     Dosage: UNK
  6. BUPROPION [Concomitant]
     Dosage: UNK
  7. ARMODAFINIL [Concomitant]
     Dosage: UNK
  8. OXYCODONE W/APAP [Concomitant]
     Dosage: UNK

REACTIONS (5)
  - Intentional overdose [Unknown]
  - Delusion [Unknown]
  - Hallucination [Unknown]
  - Arthralgia [Unknown]
  - Myalgia [Unknown]
